FAERS Safety Report 9443366 (Version 1)
Quarter: 2013Q3

REPORT INFORMATION
  Report Type: Spontaneous
  Country: US (occurrence: None)
  Receive Date: 20130802
  Receipt Date: 20130802
  Transmission Date: 20140515
  Serious: Yes (Hospitalization)
  Sender: FDA-Public Use
  Company Number: 2013-002352

PATIENT
  Age: 74 Year
  Sex: Female

DRUGS (13)
  1. PYRIDIUM [Suspect]
     Dosage: 3 TIMES A DAY
     Route: 048
  2. PYRIDIUM [Suspect]
     Dosage: 3 TIMES A DAY
     Route: 048
  3. ENALAPRIL W/HYDROCHLOROTHIAZIDE [Suspect]
  4. IBUPROFEN (IBUPROFEN) [Suspect]
     Dosage: 4-5 200 MG TABLETS ORALLY DAILY
     Route: 048
  5. ALBUTEROL W/IPRATROPIUM (IPRATROPIUM, SALBUTAMOL) [Concomitant]
  6. FORMOTEROL (FORMOTEROL) [Concomitant]
  7. BUDESONIDE (BUDESONIDE) [Concomitant]
  8. FISH OIL (FISH OIL) [Concomitant]
  9. ATORVASTATIN (ATORVASTATIN) [Concomitant]
  10. ASPIRIN (ACETYLSALICYLIC ACID) [Concomitant]
  11. CLONAZEPAM (CLONAZEPAM) [Concomitant]
  12. TRAMADOL (TRAMADOL) [Concomitant]
  13. PROCHLORPERAZINE (PROCHLORPERAZINE) [Concomitant]

REACTIONS (11)
  - Respiratory distress [None]
  - Hypoxia [None]
  - Toxicity to various agents [None]
  - Renal failure acute [None]
  - Methaemoglobinaemia [None]
  - Haemolytic anaemia [None]
  - Yellow skin [None]
  - Chromaturia [None]
  - Bladder pain [None]
  - Micturition urgency [None]
  - Macrocytosis [None]
